FAERS Safety Report 22329081 (Version 1)
Quarter: 2023Q2

REPORT INFORMATION
  Report Type: Spontaneous
  Country: FR (occurrence: FR)
  Receive Date: 20230517
  Receipt Date: 20230517
  Transmission Date: 20230722
  Serious: Yes (Other)
  Sender: FDA-Public Use
  Company Number: FR-AFSSAPS-AVLY2023000151

PATIENT
  Age: 19 Year
  Sex: Female

DRUGS (4)
  1. PREGABALIN [Suspect]
     Active Substance: PREGABALIN
     Indication: Product used for unknown indication
     Dosage: 1800 MICROGRAM PER DECILITRE (BEFORE PREGNANCY)
     Route: 048
     Dates: start: 202201
  2. CANNABIS SATIVA SUBSP. INDICA TOP [Suspect]
     Active Substance: CANNABIS SATIVA SUBSP. INDICA TOP
     Indication: Product used for unknown indication
     Dosage: UNK (OCCASIONAL CONSUMPTION)
  3. COCAINE [Suspect]
     Active Substance: COCAINE
     Indication: Product used for unknown indication
     Dosage: UNK (CONSOMMATION OCCASIONNELLE EN CONTEXTE R?CR?ATIF MAIS SANS D?PENDANCE D^APR?S LA PATIENTE)
     Route: 045
  4. MIDOMAFETAMINE [Suspect]
     Active Substance: MIDOMAFETAMINE
     Indication: Product used for unknown indication
     Dosage: UNK (CONSOMMATION OCCASIONNELLE D^1 OU 2CP)
     Route: 048

REACTIONS (3)
  - Drug dependence, antepartum [Recovered/Resolved]
  - Drug dependence [Not Recovered/Not Resolved]
  - Drug abuse [Not Recovered/Not Resolved]

NARRATIVE: CASE EVENT DATE: 20220101
